FAERS Safety Report 24942142 (Version 1)
Quarter: 2025Q1

REPORT INFORMATION
  Report Type: Spontaneous
  Country: US (occurrence: US)
  Receive Date: 20250207
  Receipt Date: 20250207
  Transmission Date: 20250408
  Serious: Yes (Death)
  Sender: ANI
  Company Number: US-ANIPHARMA-2025-US-005442

PATIENT
  Sex: Male
  Weight: 114.76 kg

DRUGS (14)
  1. CORTICOTROPIN [Suspect]
     Active Substance: CORTICOTROPIN
     Indication: Rheumatoid arthritis
     Route: 030
     Dates: start: 20240612
  2. POTASSIUM [Concomitant]
     Active Substance: POTASSIUM
  3. PREDNISONE [Concomitant]
     Active Substance: PREDNISONE
  4. FLEXERIL [Concomitant]
     Active Substance: CYCLOBENZAPRINE HYDROCHLORIDE
  5. FLOMAX [Concomitant]
     Active Substance: TAMSULOSIN HYDROCHLORIDE
  6. TESTOSTERONE [Concomitant]
     Active Substance: TESTOSTERONE
  7. ATORVASTATIN [Concomitant]
     Active Substance: ATORVASTATIN
  8. BUMETANIDE [Concomitant]
     Active Substance: BUMETANIDE
  9. VITAMIN D [Concomitant]
     Active Substance: VITAMIN D NOS
  10. FUROSEMIDE [Concomitant]
     Active Substance: FUROSEMIDE
  11. IBUPROFEN [Concomitant]
     Active Substance: IBUPROFEN
  12. LEVOTHYROXINE [Concomitant]
     Active Substance: LEVOTHYROXINE
  13. LISINOPRIL [Concomitant]
     Active Substance: LISINOPRIL
  14. OZEMPIC [Concomitant]
     Active Substance: SEMAGLUTIDE

REACTIONS (1)
  - Death [Fatal]
